FAERS Safety Report 5712861-4 (Version None)
Quarter: 2008Q2

REPORT INFORMATION
  Report Type: 
  Country: None (occurrence: None)
  Receive Date: 20080422
  Receipt Date: 20080418
  Transmission Date: 20081010
  Serious: Yes (Hospitalization)
  Sender: FDA-Public Use
  Company Number: B0514191A

PATIENT
  Age: 41 Year
  Sex: Male

DRUGS (6)
  1. RETROVIR [Suspect]
     Indication: HIV INFECTION
     Route: 048
     Dates: start: 19960201, end: 19960401
  2. COMBIVIR [Suspect]
     Indication: HIV INFECTION
     Route: 048
     Dates: start: 20040401, end: 20051201
  3. KIVEXA [Concomitant]
     Indication: HIV INFECTION
     Route: 048
     Dates: start: 20060301
  4. TIPRANAVIR [Concomitant]
     Indication: HIV INFECTION
     Route: 048
     Dates: start: 20060301
  5. TRUVADA [Concomitant]
     Indication: HIV INFECTION
     Route: 048
     Dates: start: 20070901, end: 20080301
  6. KALETRA [Concomitant]
     Indication: HIV INFECTION
     Route: 048
     Dates: start: 20070901, end: 20080301

REACTIONS (10)
  - CARDIAC FAILURE [None]
  - CARDIOMYOPATHY [None]
  - DYSPNOEA [None]
  - EJECTION FRACTION ABNORMAL [None]
  - HEPATOJUGULAR REFLUX [None]
  - HYPOPHOSPHATAEMIA [None]
  - JAUNDICE [None]
  - PITTING OEDEMA [None]
  - TREATMENT NONCOMPLIANCE [None]
  - WEIGHT INCREASED [None]
